FAERS Safety Report 20494957 (Version 3)
Quarter: 2022Q2

REPORT INFORMATION
  Report Type: Other
  Country: US (occurrence: None)
  Receive Date: 20220221
  Receipt Date: 20220409
  Transmission Date: 20220721
  Serious: No
  Sender: FDA-Public Use
  Company Number: US-ROCHE-3024898

PATIENT
  Sex: Male
  Weight: 111.23 kg

DRUGS (7)
  1. OCREVUS [Suspect]
     Active Substance: OCRELIZUMAB
     Indication: Multiple sclerosis
     Dosage: 300 MG /10 ML- 20/SEP/2021: THEN 600 MG EVERY 5 MONTHS (PRESCRIBED AS 600 MG VIAL)?DATE OF SERVICE:
     Route: 042
  2. BACLOFEN [Concomitant]
     Active Substance: BACLOFEN
  3. ASPIRIN [Concomitant]
     Active Substance: ASPIRIN
  4. AMPYRA [Concomitant]
     Active Substance: DALFAMPRIDINE
  5. ATORVASTATIN [Concomitant]
     Active Substance: ATORVASTATIN
  6. LOSARTAN [Concomitant]
     Active Substance: LOSARTAN
  7. HYDROCHLOROTHIAZIDE [Concomitant]
     Active Substance: HYDROCHLOROTHIAZIDE

REACTIONS (15)
  - JC polyomavirus test positive [Unknown]
  - Chills [Unknown]
  - Arthralgia [Unknown]
  - Musculoskeletal stiffness [Unknown]
  - Insomnia [Unknown]
  - Clumsiness [Unknown]
  - Headache [Unknown]
  - Coordination abnormal [Unknown]
  - Sensory disturbance [Unknown]
  - Peroneal nerve palsy [Unknown]
  - Amnesia [Unknown]
  - Vitamin B1 deficiency [Unknown]
  - Vitamin B12 deficiency [Unknown]
  - Vitamin D deficiency [Unknown]
  - Off label use [Unknown]
